FAERS Safety Report 4628872-6 (Version None)
Quarter: 2005Q2

REPORT INFORMATION
  Report Type: 
  Country: None (occurrence: None)
  Receive Date: 20050406
  Receipt Date: 20050322
  Transmission Date: 20051028
  Serious: Yes (Life-Threatening)
  Sender: FDA-Public Use
  Company Number: 05H-163-0295655-00

PATIENT
  Sex: Female

DRUGS (1)
  1. MORPHINE SULFATE [Suspect]
     Indication: POST PROCEDURAL PAIN
     Dosage: VIA PCA INFUSION, INTRAVENOUS
     Route: 042
     Dates: start: 20030327

REACTIONS (5)
  - CARDIO-RESPIRATORY ARREST [None]
  - FOAMING AT MOUTH [None]
  - HYPOTENSION [None]
  - OVERDOSE [None]
  - RESPIRATORY ARREST [None]
